FAERS Safety Report 8607324-2 (Version None)
Quarter: 2012Q3

REPORT INFORMATION
  Report Type: 
  Country: None (occurrence: None)
  Receive Date: 20120808
  Receipt Date: 20120710
  Transmission Date: 20120928
  Serious: Yes (Other)
  Sender: FDA-Public Use
  Company Number: 2012SA050249

PATIENT
  Age: 46 Year
  Sex: Male
  Weight: 63.5 kg

DRUGS (2)
  1. MENTHOL [Suspect]
     Indication: ARTHRALGIA
     Dosage: ONCE
     Dates: start: 20120621, end: 20120621
  2. MENTHOL [Suspect]
     Indication: BACK PAIN
     Dosage: ONCE
     Dates: start: 20120621, end: 20120621

REACTIONS (2)
  - APPLICATION SITE VESICLES [None]
  - SUNBURN [None]
